FAERS Safety Report 9255058 (Version 1)
Quarter: 2013Q2

REPORT INFORMATION
  Report Type: Spontaneous
  Country: IL (occurrence: None)
  Receive Date: 20130422
  Receipt Date: 20130422
  Transmission Date: 20140414
  Serious: Yes (Other)
  Sender: FDA-Public Use
  Company Number: IL-EMCURE-000706

PATIENT
  Age: 31 Year
  Sex: Male

DRUGS (2)
  1. CARMUSTINE [Suspect]
     Indication: NON-HODGKIN^S LYMPHOMA
  2. DOXORUBICIN (DOXORUBICIN) (DOXORUBICIN) [Suspect]
     Indication: NON-HODGKIN^S LYMPHOMA

REACTIONS (1)
  - Infertility [None]
